FAERS Safety Report 5313718-3 (Version None)
Quarter: 2007Q2

REPORT INFORMATION
  Report Type: 
  Country: None (occurrence: None)
  Receive Date: 20070425
  Receipt Date: 20070410
  Transmission Date: 20071010
  Serious: Yes (Hospitalization, Other)
  Sender: FDA-Public Use
  Company Number: 2007RR-06828

PATIENT
  Age: 53 Year
  Sex: Male

DRUGS (4)
  1. NIFEDIPINE [Suspect]
  2. FUROSEMIDE [Suspect]
  3. GLYBURIDE [Suspect]
  4. CHLORPROMAZINE [Suspect]

REACTIONS (7)
  - DIABETIC RETINOPATHY [None]
  - HYPERGLYCAEMIA [None]
  - HYPOKALAEMIA [None]
  - INAPPROPRIATE ANTIDIURETIC HORMONE SECRETION [None]
  - MALARIA [None]
  - METABOLIC ALKALOSIS [None]
  - OEDEMA PERIPHERAL [None]
